FAERS Safety Report 7265674-9 (Version None)
Quarter: 2011Q1

REPORT INFORMATION
  Report Type: 
  Country: None (occurrence: None)
  Receive Date: 20110131
  Receipt Date: 20110127
  Transmission Date: 20110831
  Serious: Yes (Death, Hospitalization)
  Sender: FDA-Public Use
  Company Number: IT-MERCK-1101ITA00029

PATIENT
  Age: 74 Year
  Sex: Male

DRUGS (26)
  1. MEROPENEM [Suspect]
     Route: 041
     Dates: start: 20110104, end: 20110111
  2. ALBUMIN HUMAN [Concomitant]
     Route: 065
  3. CANCIDAS [Suspect]
     Route: 041
     Dates: start: 20101226, end: 20110112
  4. PIPERACILLIN SODIUM AND TAZOBACTAM SODIUM [Suspect]
     Route: 041
     Dates: start: 20101222, end: 20101225
  5. CIPROFLOXACIN [Suspect]
     Route: 041
     Dates: start: 20101227, end: 20110103
  6. ETHACRYNIC ACID [Concomitant]
     Route: 065
  7. OMEPRAZOLE [Concomitant]
     Route: 065
  8. AMIKACIN [Suspect]
     Route: 041
     Dates: start: 20101220, end: 20101226
  9. ENOXAPARIN SODIUM [Concomitant]
     Route: 065
  10. PHYTONADIONE [Concomitant]
     Route: 065
  11. INSULIN HUMAN [Concomitant]
     Route: 065
  12. CANCIDAS [Suspect]
     Route: 041
     Dates: start: 20101225, end: 20101225
  13. FLUCONAZOLE [Concomitant]
     Route: 065
  14. PIPERACILLIN SODIUM AND TAZOBACTAM SODIUM [Suspect]
     Route: 041
     Dates: start: 20101226, end: 20101230
  15. CISATRACURIUM BESYLATE [Concomitant]
     Route: 065
  16. PROPACETAMOL HYDROCHLORIDE [Concomitant]
     Route: 065
  17. NOREPINEPHRINE [Concomitant]
     Route: 065
  18. PIPERACILLIN SODIUM AND TAZOBACTAM SODIUM [Suspect]
     Indication: SEPSIS
     Route: 041
     Dates: start: 20101215, end: 20101221
  19. DIATRIZOATE MEGLUMINE AND DIATRIZOATE SODIUM [Concomitant]
     Route: 065
  20. AMIODARONE HYDROCHLORIDE [Concomitant]
     Route: 065
  21. FUROSEMIDE SODIUM [Concomitant]
     Route: 065
  22. TEICOPLANIN [Suspect]
     Route: 041
     Dates: start: 20101225, end: 20110104
  23. LINEZOLID [Suspect]
     Route: 041
     Dates: start: 20110104, end: 20110113
  24. OCTREOTIDE [Concomitant]
     Route: 065
  25. MORPHINE HYDROCHLORIDE [Concomitant]
     Route: 065
  26. CANRENOATE POTASSIUM [Concomitant]
     Route: 065

REACTIONS (2)
  - STEVENS-JOHNSON SYNDROME [None]
  - DEATH [None]
